FAERS Safety Report 25310377 (Version 1)
Quarter: 2025Q2

REPORT INFORMATION
  Report Type: Spontaneous
  Country: IN (occurrence: IN)
  Receive Date: 20250514
  Receipt Date: 20250514
  Transmission Date: 20250716
  Serious: Yes (Hospitalization, Other)
  Sender: LEGACY PHARMACEUTICAL PACKAGING
  Company Number: IN-LEGACY PHARMA INC. SEZC-LGP202505-000148

PATIENT
  Age: 45 Year
  Sex: Male

DRUGS (5)
  1. ATROPINE SULFATE\DIFENOXIN HYDROCHLORIDE [Suspect]
     Active Substance: ATROPINE SULFATE\DIFENOXIN HYDROCHLORIDE
     Indication: Chemical poisoning
     Dosage: 10 MILLILITER, Q8H, 10 ML IN 100 ML NORMAL SALINE
     Route: 042
  2. ATROPINE SULFATE\DIFENOXIN HYDROCHLORIDE [Suspect]
     Active Substance: ATROPINE SULFATE\DIFENOXIN HYDROCHLORIDE
     Dosage: 3 MILLILITER, Q8H, 3 ML IN 100 ML NORMAL SALINE
     Route: 042
  3. PRALIDOXIME [Concomitant]
     Active Substance: PRALIDOXIME
     Indication: Chemical poisoning
     Route: 042
  4. Optineuron [Concomitant]
     Route: 042
  5. PANTOPRAZOLE [Concomitant]
     Active Substance: PANTOPRAZOLE
     Indication: Chemical poisoning
     Dosage: 40 MILLIGRAM, DAILY

REACTIONS (6)
  - Substance-induced psychotic disorder [Recovered/Resolved]
  - Hallucinations, mixed [Recovered/Resolved]
  - Agitation [Recovered/Resolved]
  - Anxiety [Recovered/Resolved]
  - Dry mouth [Recovered/Resolved]
  - Product use in unapproved indication [Unknown]
